FAERS Safety Report 5294338-6 (Version None)
Quarter: 2007Q2

REPORT INFORMATION
  Report Type: 
  Country: None (occurrence: None)
  Receive Date: 20070412
  Receipt Date: 20070314
  Transmission Date: 20071010
  Serious: No
  Sender: FDA-Public Use
  Company Number: ES-BAYER-200711080GDS

PATIENT
  Age: 51 Year
  Sex: Female

DRUGS (1)
  1. ACETYLSALICYLIC ACID SRT [Suspect]
     Indication: ANTIPYRESIS
     Route: 048
     Dates: start: 20051001, end: 20051003

REACTIONS (3)
  - EPISTAXIS [None]
  - PURPURA [None]
  - VASCULITIS [None]
